FAERS Safety Report 5512510-4 (Version None)
Quarter: 2007Q4

REPORT INFORMATION
  Report Type: 
  Country: None (occurrence: None)
  Receive Date: 20071112
  Receipt Date: 20070601
  Transmission Date: 20080405
  Serious: No
  Sender: FDA-Public Use
  Company Number: A0653815A

PATIENT
  Age: 80 Year
  Sex: Female

DRUGS (3)
  1. AVANDAMET [Suspect]
     Dosage: 1TAB PER DAY
     Route: 048
     Dates: start: 20070307, end: 20070310
  2. LIPITOR [Concomitant]
  3. ZETIA [Concomitant]

REACTIONS (2)
  - HYPERHIDROSIS [None]
  - PALPITATIONS [None]
